FAERS Safety Report 12798962 (Version 3)
Quarter: 2017Q1

REPORT INFORMATION
  Report Type: Spontaneous
  Country: US (occurrence: US)
  Receive Date: 20160930
  Receipt Date: 20170103
  Transmission Date: 20170428
  Serious: Yes (Hospitalization, Other)
  Sender: FDA-Public Use
  Company Number: US-PFIZER INC-2016442484

PATIENT
  Age: 69 Year
  Sex: Male
  Weight: 97.5 kg

DRUGS (4)
  1. SUTENT [Suspect]
     Active Substance: SUNITINIB MALATE
     Indication: METASTATIC RENAL CELL CARCINOMA
     Dosage: 50 MG, CYCLIC (1 CAP DAILY FOR 4 WEEKS-2 WEEKS OFF)
     Dates: start: 20160830, end: 20161114
  2. SUTENT [Suspect]
     Active Substance: SUNITINIB MALATE
     Indication: RENAL CANCER STAGE IV
     Dosage: 50 MG, CYCLIC (1 CAP DAILY FOR 28 DAYS AND THEN 14 DAYS OFF)
     Dates: start: 20160830, end: 20161114
  3. SUTENT [Suspect]
     Active Substance: SUNITINIB MALATE
     Dosage: 50 MG, CYCLIC (1 CAP DAILY FOR 4 WEEKS-2 WEEKS OFF)
     Dates: start: 20160830, end: 20161114
  4. INSULIN [Concomitant]
     Active Substance: INSULIN NOS
     Indication: DIABETES MELLITUS
     Dosage: UNK
     Dates: start: 2000

REACTIONS (4)
  - Blood potassium increased [Recovered/Resolved]
  - Neoplasm progression [Unknown]
  - Nausea [Recovered/Resolved]
  - Hyperthyroidism [Recovered/Resolved]

NARRATIVE: CASE EVENT DATE: 20160901
